FAERS Safety Report 13573685 (Version 4)
Quarter: 2017Q2

REPORT INFORMATION
  Report Type: Spontaneous
  Country: IT (occurrence: IT)
  Receive Date: 20170523
  Receipt Date: 20170613
  Transmission Date: 20170830
  Serious: Yes (Hospitalization)
  Sender: FDA-Public Use
  Company Number: IT-PFIZER INC-2017221255

PATIENT
  Age: 28 Year
  Sex: Female

DRUGS (6)
  1. ACTIGRIP [Suspect]
     Active Substance: ACETAMINOPHEN\PSEUDOEPHEDRINE HYDROCHLORIDE\TRIPROLIDINE HYDROCHLORIDE
     Dosage: 12 DF, SINGLE
     Route: 048
     Dates: start: 20170426, end: 20170426
  2. CETIRIZINE [Suspect]
     Active Substance: CETIRIZINE HYDROCHLORIDE
     Dosage: 100 MG, SINGLE
     Route: 048
     Dates: start: 20170426, end: 20170426
  3. XANAX [Suspect]
     Active Substance: ALPRAZOLAM
     Dosage: 7.5 MG, SINGLE
     Route: 048
     Dates: start: 20170426, end: 20170426
  4. TACHIPIRINA [Suspect]
     Active Substance: ACETAMINOPHEN
     Dosage: 8 G, SINGLE
     Route: 048
     Dates: start: 20170426, end: 20170426
  5. XANAX [Suspect]
     Active Substance: ALPRAZOLAM
     Dosage: 15 MG, SINGLE
     Route: 048
     Dates: start: 20170426, end: 20170426
  6. FLUOXETINE [Suspect]
     Active Substance: FLUOXETINE HYDROCHLORIDE
     Dosage: 20 MG, SINGLE
     Route: 048
     Dates: start: 20170426, end: 20170426

REACTIONS (3)
  - Drug use disorder [Unknown]
  - Intentional self-injury [Unknown]
  - Intentional overdose [Unknown]

NARRATIVE: CASE EVENT DATE: 20170426
